FAERS Safety Report 12450893 (Version 1)
Quarter: 2016Q2

REPORT INFORMATION
  Report Type: Spontaneous
  Country: DE (occurrence: DE)
  Receive Date: 20160609
  Receipt Date: 20160609
  Transmission Date: 20160815
  Serious: Yes (Other)
  Sender: FDA-Public Use
  Company Number: DE-ASCEND THERAPEUTICS-1053581

PATIENT
  Age: 59 Year
  Sex: Female
  Weight: 60 kg

DRUGS (3)
  1. LEVOTHYROXINE. [Concomitant]
     Active Substance: LEVOTHYROXINE
     Route: 048
  2. UTROGEST [Concomitant]
     Active Substance: PROGESTERONE
     Route: 067
     Dates: start: 20051101, end: 20151101
  3. ESTROGEL [Suspect]
     Active Substance: ESTRADIOL
     Indication: MENOPAUSAL SYMPTOMS
     Route: 062
     Dates: start: 20051101, end: 20151101

REACTIONS (5)
  - Uterine leiomyoma [Unknown]
  - Investigation abnormal [Unknown]
  - Endometrial cancer [Recovered/Resolved with Sequelae]
  - Endometrial adenocarcinoma [Recovered/Resolved with Sequelae]
  - Incorrect route of drug administration [Unknown]

NARRATIVE: CASE EVENT DATE: 20151124
